FAERS Safety Report 17099246 (Version 1)
Quarter: 2019Q4

REPORT INFORMATION
  Report Type: Spontaneous
  Country: US (occurrence: US)
  Receive Date: 20191106
  Receipt Date: 20191106
  Transmission Date: 20200122
  Serious: No
  Sender: FDA-Public Use
  Company Number: None

PATIENT
  Age: 63 Year
  Sex: Male

DRUGS (4)
  1. ZYTIGA [Suspect]
     Active Substance: ABIRATERONE ACETATE
     Indication: PROSTATE CANCER
     Route: 048
     Dates: start: 20190730
  2. LUPRON [Concomitant]
     Active Substance: LEUPROLIDE ACETATE
  3. ZOMETA [Concomitant]
     Active Substance: ZOLEDRONIC ACID
  4. VITAMIN C [Concomitant]
     Active Substance: ASCORBIC ACID

REACTIONS (1)
  - Disease progression [None]

NARRATIVE: CASE EVENT DATE: 20191106
